FAERS Safety Report 8575976-1 (Version None)
Quarter: 2012Q3

REPORT INFORMATION
  Report Type: 
  Country: None (occurrence: None)
  Receive Date: 20120807
  Receipt Date: 20120803
  Transmission Date: 20120928
  Serious: Yes (Other)
  Sender: FDA-Public Use
  Company Number: US-B.I. PHARMACEUTICALS,INC./RIDGEFIELD-2012-BP-17553BP

PATIENT
  Sex: Male
  Weight: 113 kg

DRUGS (2)
  1. PACERONE [Concomitant]
     Indication: ARRHYTHMIA
     Dosage: 400 MG
     Route: 048
  2. SPIRIVA [Suspect]
     Indication: EMPHYSEMA
     Dosage: 18 MCG
     Route: 055
     Dates: start: 20100101

REACTIONS (4)
  - MYOCARDIAL INFARCTION [None]
  - HEART VALVE STENOSIS [None]
  - ARRHYTHMIA [None]
  - FEELING HOT [None]
